FAERS Safety Report 25970754 (Version 1)
Quarter: 2025Q4

REPORT INFORMATION
  Report Type: Spontaneous
  Country: US (occurrence: US)
  Receive Date: 20251028
  Receipt Date: 20251028
  Transmission Date: 20260118
  Serious: Yes (Other)
  Sender: DR REDDYS
  Company Number: US-DRL-USA-USA/2025/10/016053

PATIENT
  Age: 58 Year
  Sex: Female

DRUGS (3)
  1. GEMCITABINE [Suspect]
     Active Substance: GEMCITABINE
     Indication: Pancreatic carcinoma metastatic
     Dosage: 2 CYCLE
  2. PACLITAXEL [Suspect]
     Active Substance: PACLITAXEL
     Indication: Pancreatic carcinoma metastatic
     Dosage: 2 CYCLE
  3. IVOSPEMIN [Suspect]
     Active Substance: IVOSPEMIN
     Indication: Pancreatic carcinoma metastatic
     Dosage: 2 CYCLE

REACTIONS (2)
  - Neutropenia [Unknown]
  - Retinal toxicity [Unknown]
